FAERS Safety Report 23749078 (Version 4)
Quarter: 2024Q3

REPORT INFORMATION
  Report Type: Report from Study
  Country: AT (occurrence: AT)
  Receive Date: 20240416
  Receipt Date: 20240909
  Transmission Date: 20241016
  Serious: Yes (Hospitalization, Other)
  Sender: PFIZER
  Company Number: AT-PFM-2024-02296

PATIENT
  Age: 61 Year
  Sex: Female

DRUGS (21)
  1. ENCORAFENIB [Suspect]
     Active Substance: ENCORAFENIB
     Indication: Malignant melanoma
     Dosage: 450 MG, QD (1/DAY)
     Route: 048
     Dates: start: 20230804, end: 20230810
  2. ENCORAFENIB [Suspect]
     Active Substance: ENCORAFENIB
     Dosage: 450 MG, QD (1/DAY)
     Route: 048
     Dates: start: 20230818, end: 20240403
  3. BINIMETINIB [Suspect]
     Active Substance: BINIMETINIB
     Indication: Malignant melanoma
     Dosage: 45 MG, BID (2/DAY)
     Route: 048
     Dates: start: 20230804, end: 20230811
  4. BINIMETINIB [Suspect]
     Active Substance: BINIMETINIB
     Dosage: 45 MG, BID (2/DAY)
     Route: 048
     Dates: start: 20230818, end: 20240403
  5. METFORMIN HYDROCHLORIDE [Concomitant]
     Active Substance: METFORMIN HYDROCHLORIDE
     Dosage: UNK
     Route: 065
  6. DEXAMETHASONE [Concomitant]
     Active Substance: DEXAMETHASONE
     Indication: Prophylaxis
     Dosage: UNK
     Route: 065
  7. LEVETIRACETAM [Concomitant]
     Active Substance: LEVETIRACETAM
     Indication: Prophylaxis
     Dosage: UNK
     Route: 065
  8. PANTOPRAZOLE SODIUM [Concomitant]
     Active Substance: PANTOPRAZOLE SODIUM
     Indication: Prophylaxis
     Dosage: UNK
     Route: 065
  9. EZETIMIBE\ROSUVASTATIN CALCIUM [Concomitant]
     Active Substance: EZETIMIBE\ROSUVASTATIN CALCIUM
     Dosage: UNK
     Route: 065
  10. SULTAMICILLIN TOSYLATE [Concomitant]
     Active Substance: SULTAMICILLIN TOSYLATE
     Indication: Erysipelas
     Dosage: UNK
     Route: 065
     Dates: start: 20230811, end: 20230818
  11. ELOMEL [Concomitant]
     Indication: Erysipelas
     Dosage: UNK
     Route: 065
     Dates: start: 20230811, end: 20230815
  12. LOVENOX [Concomitant]
     Active Substance: ENOXAPARIN SODIUM
     Indication: Erysipelas
     Dosage: UNK
     Route: 065
     Dates: start: 20230811, end: 20230818
  13. EUCERIN [RICINUS COMMUNIS OIL] [Concomitant]
     Indication: Erysipelas
     Dosage: UNK
     Route: 065
     Dates: start: 20230811, end: 20230815
  14. VALACYCLOVIR HYDROCHLORIDE [Concomitant]
     Active Substance: VALACYCLOVIR HYDROCHLORIDE
     Indication: Erysipelas
     Dosage: UNK
     Route: 065
     Dates: start: 20230813, end: 20230817
  15. AMOXICILLIN [Concomitant]
     Active Substance: AMOXICILLIN
     Indication: Erysipelas
     Dosage: UNK
     Route: 065
     Dates: start: 20230819, end: 202309
  16. ENOXAPARIN SODIUM [Concomitant]
     Active Substance: ENOXAPARIN SODIUM
     Indication: Erysipelas
     Dosage: UNK
     Route: 065
     Dates: start: 20230819, end: 20230823
  17. AMOXICOMP [Concomitant]
     Indication: Dyspnoea
     Dosage: UNK
     Route: 065
     Dates: start: 20240217, end: 20240219
  18. LASIX [Concomitant]
     Active Substance: FUROSEMIDE
     Indication: Dyspnoea
     Dosage: UNK
     Route: 065
     Dates: start: 20240219, end: 20240219
  19. LASIX [Concomitant]
     Active Substance: FUROSEMIDE
     Dosage: UNK
     Route: 065
     Dates: start: 20240220
  20. MIRTAZAPINE [Concomitant]
     Active Substance: MIRTAZAPINE
     Indication: Depression
     Dosage: UNK
     Route: 065
     Dates: start: 202403
  21. RETINOL [Concomitant]
     Active Substance: RETINOL
     Indication: Prophylaxis
     Dosage: UNK
     Route: 065
     Dates: start: 202403

REACTIONS (1)
  - General physical health deterioration [Recovered/Resolved]

NARRATIVE: CASE EVENT DATE: 20240406
